FAERS Safety Report 4968744-0 (Version None)
Quarter: 2006Q2

REPORT INFORMATION
  Report Type: 
  Country: None (occurrence: None)
  Receive Date: 20060405
  Receipt Date: 20060323
  Transmission Date: 20061013
  Serious: Yes (Other)
  Sender: FDA-Public Use
  Company Number: 161-20785-06030923

PATIENT
  Age: 63 Year
  Sex: Female

DRUGS (2)
  1. THALIDOMIDE (THALIDOMIDE) [Suspect]
     Indication: MULTIPLE MYELOMA
     Dosage: 200 MG, DAILY, ORAL
     Route: 048
     Dates: start: 20041001
  2. DEXAMETHASONE [Suspect]
     Indication: MULTIPLE MYELOMA
     Dosage: 40MG, 1-4 DAYS, EVERY 30 DAYS.
     Dates: start: 20041001

REACTIONS (1)
  - AUTOIMMUNE THYROIDITIS [None]
